FAERS Safety Report 9521355 (Version 1)
Quarter: 2013Q1

REPORT INFORMATION
  Report Type: Spontaneous
  Country: US (occurrence: None)
  Receive Date: 20130305
  Receipt Date: 20130305
  Transmission Date: 20140127
  Serious: Yes (Other)
  Sender: FDA-Public Use
  Company Number: 163-21880-12072520

PATIENT
  Age: 66 Year
  Sex: Female

DRUGS (12)
  1. REVLIMID [Suspect]
     Indication: PLASMA CELL MYELOMA
     Route: 048
     Dates: start: 20120614, end: 20120703
  2. PACKED RED BLOOD CELLS (BLOOD CELLS, PACKED HUMAN) [Concomitant]
  3. ACYCLOVIR (ACICLOVIR) (ACICLOVIR) [Concomitant]
  4. SEVELAMIR (SEVELAMIR) [Concomitant]
  5. SENNA [Concomitant]
  6. MIRALAX [Concomitant]
  7. TYLENOL (PARACETAMOL) [Concomitant]
  8. SENSIPAR CINACALCET HYDROCHLORIDE) [Concomitant]
  9. OXYCODONE (OXYCODONE) [Concomitant]
  10. TRAMADOL (TRAMADOL) [Concomitant]
  11. DECADRON (DEXAMETHASONE) [Concomitant]
  12. VITAMINS (VITAMINS) [Concomitant]

REACTIONS (3)
  - Pancytopenia [None]
  - Plasma cell myeloma [None]
  - Blood calcium increased [None]
